FAERS Safety Report 6462668-8 (Version None)
Quarter: 2009Q4

REPORT INFORMATION
  Report Type: 
  Country: None (occurrence: None)
  Receive Date: 20091130
  Receipt Date: 20091119
  Transmission Date: 20100525
  Serious: Yes (Other)
  Sender: FDA-Public Use
  Company Number: JP-TYCO HEALTHCARE/MALLINCKRODT-T200902132

PATIENT
  Age: 40 Year
  Sex: Male

DRUGS (5)
  1. PAMELOR [Suspect]
     Indication: DEPRESSION
  2. MIANSERIN HYDROCHLORIDE [Suspect]
  3. SERTRALINE HYDROCHLORIDE [Suspect]
  4. BROTIZOLAM [Suspect]
  5. AMANTADINE [Suspect]

REACTIONS (2)
  - BRUGADA SYNDROME [None]
  - CONVULSION [None]
